FAERS Safety Report 23378132 (Version 1)
Quarter: 2024Q1

REPORT INFORMATION
  Report Type: Report from Study
  Country: GB (occurrence: GB)
  Receive Date: 20240108
  Receipt Date: 20240108
  Transmission Date: 20240409
  Serious: Yes (Other)
  Sender: FDA-Public Use
  Company Number: GB-ABBVIE-4344714

PATIENT
  Age: 59 Year
  Sex: Male

DRUGS (3)
  1. NAPROXEN [Suspect]
     Active Substance: NAPROXEN
     Indication: Pain
     Dosage: UNK
     Route: 065
     Dates: start: 2023
  2. CARBIDOPA\LEVODOPA [Suspect]
     Active Substance: CARBIDOPA\LEVODOPA
     Indication: Parkinson^s disease
     Dosage: UNK,(MD: 9.6 MLS ED : 1.2 MLS CR:1.8 MLS, 20MGS/5MGS.FIRST AND LAST DATE WAS 2023)
     Route: 065
     Dates: start: 2023, end: 2023
  3. CARBIDOPA\LEVODOPA [Suspect]
     Active Substance: CARBIDOPA\LEVODOPA
     Dosage: UNK
     Route: 065
     Dates: start: 202302, end: 2023

REACTIONS (25)
  - Hip arthroplasty [Recovering/Resolving]
  - Freezing phenomenon [Recovering/Resolving]
  - Parkinson^s disease [Recovering/Resolving]
  - Hallucination [Recovered/Resolved]
  - Dyskinesia [Not Recovered/Not Resolved]
  - Fall [Recovering/Resolving]
  - Weight decreased [Recovered/Resolved]
  - Aggression [Unknown]
  - Anxiety [Unknown]
  - Arthritis [Recovering/Resolving]
  - Post procedural complication [Not Recovered/Not Resolved]
  - Stoma site reaction [Unknown]
  - Mobility decreased [Unknown]
  - Gait disturbance [Unknown]
  - Stoma site erythema [Not Recovered/Not Resolved]
  - Procedural pain [Not Recovered/Not Resolved]
  - Muscle rigidity [Not Recovered/Not Resolved]
  - Device power source issue [Recovering/Resolving]
  - Device difficult to use [Recovering/Resolving]
  - Device connection issue [Recovered/Resolved]
  - Device leakage [Recovered/Resolved]
  - Device dislocation [Not Recovered/Not Resolved]
  - Cognitive disorder [Not Recovered/Not Resolved]
  - Abnormal dreams [Not Recovered/Not Resolved]
  - Incorrect dose administered [Unknown]

NARRATIVE: CASE EVENT DATE: 20230101
